FAERS Safety Report 12210034 (Version 1)
Quarter: 2016Q1

REPORT INFORMATION
  Report Type: Spontaneous
  Country: GB (occurrence: GB)
  Receive Date: 20160325
  Receipt Date: 20160325
  Transmission Date: 20160526
  Serious: Yes (Hospitalization)
  Sender: FDA-Public Use
  Company Number: GB-TEVA-645312ACC

PATIENT
  Age: 77 Year
  Sex: Female
  Weight: 79 kg

DRUGS (12)
  1. APIXABAN [Concomitant]
     Active Substance: APIXABAN
  2. PRAVASTATIN [Concomitant]
     Active Substance: PRAVASTATIN\PRAVASTATIN SODIUM
  3. SENNA [Concomitant]
     Active Substance: SENNA LEAF\SENNOSIDES\SENNOSIDES A AND B
  4. ENOXAPARIN [Concomitant]
     Active Substance: ENOXAPARIN
  5. MEROPENEM. [Concomitant]
     Active Substance: MEROPENEM
  6. RIFAMPICIN [Concomitant]
     Active Substance: RIFAMPIN
  7. DOXYCYCLINE. [Suspect]
     Active Substance: DOXYCYCLINE
     Indication: INFECTION
     Dosage: 200MG STAT DOSE ON DAY 1 THEN 100MG TWO TIMES A DAY
     Route: 048
     Dates: start: 20160211, end: 20160211
  8. VANCOMYCIN [Concomitant]
     Active Substance: VANCOMYCIN
  9. LEVOFLOXACIN. [Concomitant]
     Active Substance: LEVOFLOXACIN
  10. MST CONTINUS [Concomitant]
     Active Substance: MORPHINE SULFATE
  11. HYDROXYCHLOROQUINE [Concomitant]
     Active Substance: HYDROXYCHLOROQUINE
  12. PARACETAMOL [Concomitant]
     Active Substance: ACETAMINOPHEN

REACTIONS (3)
  - Oesophageal pain [Recovered/Resolved]
  - Foreign body [Recovered/Resolved]
  - Vomiting [Recovered/Resolved]

NARRATIVE: CASE EVENT DATE: 20160211
